FAERS Safety Report 21954747 (Version 3)
Quarter: 2024Q2

REPORT INFORMATION
  Report Type: Spontaneous
  Country: JP (occurrence: JP)
  Receive Date: 20230205
  Receipt Date: 20240521
  Transmission Date: 20240716
  Serious: Yes (Other)
  Sender: FDA-Public Use
  Company Number: JP-SAKK-2023SA036430AA

PATIENT
  Age: 70 Year
  Sex: Male

DRUGS (2)
  1. ENJAYMO [Suspect]
     Active Substance: SUTIMLIMAB-JOME
     Indication: Cold type haemolytic anaemia
     Dosage: UNK
     Route: 041
     Dates: start: 20230125
  2. ENJAYMO [Suspect]
     Active Substance: SUTIMLIMAB-JOME
     Dosage: THE 2ND DOSE WAS ADMINISTERED
     Route: 041
     Dates: start: 20230201

REACTIONS (2)
  - Alcohol poisoning [Unknown]
  - COVID-19 [Unknown]

NARRATIVE: CASE EVENT DATE: 20230131
